FAERS Safety Report 13145628 (Version 2)
Quarter: 2017Q1

REPORT INFORMATION
  Report Type: Report from Study
  Country: US (occurrence: US)
  Receive Date: 20170124
  Receipt Date: 20170127
  Transmission Date: 20170428
  Serious: Yes (Hospitalization, Other)
  Sender: FDA-Public Use
  Company Number: US-ACTELION-A-US2017-148682

PATIENT
  Age: 57 Year
  Sex: Male

DRUGS (3)
  1. OPSUMIT [Concomitant]
     Active Substance: MACITENTAN
     Indication: PULMONARY HYPERTENSION
  2. VELETRI [Suspect]
     Active Substance: EPOPROSTENOL
     Indication: PULMONARY HYPERTENSION
     Dosage: 43.3 NG/KG, PER MIN
     Route: 042
     Dates: start: 20151029
  3. ADEMPAS [Concomitant]
     Active Substance: RIOCIGUAT

REACTIONS (6)
  - Pancreatitis [Unknown]
  - Abdominal pain [Unknown]
  - Gallbladder pain [Unknown]
  - Hypotension [Recovering/Resolving]
  - Cholecystectomy [Recovering/Resolving]
  - Lung disorder [Not Recovered/Not Resolved]
